FAERS Safety Report 18725146 (Version 1)
Quarter: 2021Q1

REPORT INFORMATION
  Report Type: Spontaneous
  Country: US (occurrence: US)
  Receive Date: 20210111
  Receipt Date: 20210111
  Transmission Date: 20210419
  Serious: Yes (Other)
  Sender: FDA-Public Use
  Company Number: US-ELI_LILLY_AND_COMPANY-US202101001666

PATIENT
  Sex: Male

DRUGS (1)
  1. TRULICITY [Suspect]
     Active Substance: DULAGLUTIDE
     Indication: PRODUCT USED FOR UNKNOWN INDICATION
     Dosage: 4.5 MG, WEEKLY (1/W) (EVERY MONDAY)
     Route: 065
     Dates: start: 202004

REACTIONS (4)
  - Weight decreased [Unknown]
  - Liver disorder [Unknown]
  - Abdominal distension [Unknown]
  - Chronic kidney disease [Unknown]
